FAERS Safety Report 16661866 (Version 1)
Quarter: 2019Q3

REPORT INFORMATION
  Report Type: Spontaneous
  Country: FR (occurrence: FR)
  Receive Date: 20190802
  Receipt Date: 20190802
  Transmission Date: 20191004
  Serious: Yes (Hospitalization)
  Sender: FDA-Public Use
  Company Number: FR-PFIZER INC-2019323306

PATIENT
  Age: 34 Year
  Sex: Female
  Weight: 84 kg

DRUGS (10)
  1. METHYLPREDNISOLONE MYLAN [METHYLPREDNISOLONE HEMISUCCINATE] [Suspect]
     Active Substance: METHYLPREDNISOLONE HEMISUCCINATE
     Indication: DIFFUSE LARGE B-CELL LYMPHOMA STAGE IV
     Dosage: 98 MG, DAILY
     Route: 042
     Dates: start: 20180820, end: 20180820
  2. METHOTREXATE BIODIM [Suspect]
     Active Substance: METHOTREXATE
     Indication: DIFFUSE LARGE B-CELL LYMPHOMA STAGE IV
     Dosage: 15 MG, SINGLE
     Route: 037
     Dates: start: 20180820, end: 20180820
  3. ENDOXAN [CYCLOPHOSPHAMIDE MONOHYDRATE] [Suspect]
     Active Substance: CYCLOPHOSPHAMIDE
     Indication: DIFFUSE LARGE B-CELL LYMPHOMA STAGE IV
     Dosage: 1450 UG, SINGLE
     Route: 042
     Dates: start: 20180820, end: 20180820
  4. CORTANCYL [Suspect]
     Active Substance: PREDNISONE
     Indication: DIFFUSE LARGE B-CELL LYMPHOMA STAGE IV
     Dosage: 117.6 MG, DAILY
     Route: 048
     Dates: start: 20180821, end: 20180825
  5. PERFALGAN [Concomitant]
     Active Substance: ACETAMINOPHEN
     Indication: DIFFUSE LARGE B-CELL LYMPHOMA STAGE IV
     Dosage: UNK
     Route: 042
     Dates: start: 20180820
  6. POLARAMINE [Concomitant]
     Active Substance: DEXCHLORPHENIRAMINE MALEATE
     Indication: DIFFUSE LARGE B-CELL LYMPHOMA STAGE IV
     Dosage: UNK
     Route: 042
     Dates: start: 20180820, end: 20180820
  7. VINCRISTINE SULFATE. [Suspect]
     Active Substance: VINCRISTINE SULFATE
     Indication: DIFFUSE LARGE B-CELL LYMPHOMA STAGE IV
     Dosage: 1 DF, 1X/DAY
     Route: 048
     Dates: start: 20180820, end: 20180820
  8. DOXORUBICINE ACCORD [Suspect]
     Active Substance: DOXORUBICIN
     Indication: DIFFUSE LARGE B-CELL LYMPHOMA STAGE IV
     Dosage: 98 MG, SINGLE
     Route: 042
     Dates: start: 20180820, end: 20180820
  9. MABTHERA [Suspect]
     Active Substance: RITUXIMAB
     Indication: DIFFUSE LARGE B-CELL LYMPHOMA STAGE IV
     Dosage: 1 DF, SINGLE
     Route: 058
     Dates: start: 20180820, end: 20180820
  10. ZOPHREN [ONDANSETRON HYDROCHLORIDE] [Concomitant]
     Active Substance: ONDANSETRON
     Indication: DIFFUSE LARGE B-CELL LYMPHOMA STAGE IV
     Dosage: 1 DF, SINGLE
     Route: 042
     Dates: start: 20180820, end: 20180820

REACTIONS (5)
  - Mucosal inflammation [Recovered/Resolved]
  - Viral haemorrhagic cystitis [Recovered/Resolved]
  - Opportunistic infection [Recovered/Resolved]
  - Febrile bone marrow aplasia [Recovered/Resolved]
  - Abscess [Recovered/Resolved]

NARRATIVE: CASE EVENT DATE: 20180831
